FAERS Safety Report 24263678 (Version 4)
Quarter: 2024Q4

REPORT INFORMATION
  Report Type: Report from Study
  Country: BR (occurrence: BR)
  Receive Date: 20240829
  Receipt Date: 20241207
  Transmission Date: 20250114
  Serious: Yes (Hospitalization)
  Sender: JOHNSON AND JOHNSON
  Company Number: BR-JNJFOC-20240863204

PATIENT
  Age: 33 Year
  Sex: Male
  Weight: 137 kg

DRUGS (1)
  1. TREMFYA [Suspect]
     Active Substance: GUSELKUMAB
     Indication: Psoriasis
     Route: 058
     Dates: start: 20240707

REACTIONS (1)
  - Erysipelas [Not Recovered/Not Resolved]
